FAERS Safety Report 7463716-9 (Version None)
Quarter: 2011Q2

REPORT INFORMATION
  Report Type: 
  Country: None (occurrence: None)
  Receive Date: 20110506
  Receipt Date: 20110323
  Transmission Date: 20111010
  Serious: Yes (Hospitalization, Other)
  Sender: FDA-Public Use
  Company Number: US-BAYER-201025503NA

PATIENT
  Sex: Female
  Weight: 131.97 kg

DRUGS (14)
  1. LUNESTA [Concomitant]
     Dosage: UNK
     Dates: start: 20090101
  2. MEDTOXYPR. AC [Concomitant]
  3. ONDANSETRON [Concomitant]
  4. SEROQUEL [Concomitant]
  5. NUVIGIL [Concomitant]
  6. NEXIUM [Concomitant]
     Indication: ULCER
     Dosage: UNK
     Dates: start: 20070101
  7. TOPAMAX [Concomitant]
     Indication: MIGRAINE
     Dosage: UNK
     Dates: start: 20040101
  8. LYRICA [Concomitant]
  9. TRAMADOL [Concomitant]
  10. PRILOSEC [Concomitant]
     Indication: ULCER
     Dosage: UNK
     Dates: start: 20070101
  11. YASMIN [Suspect]
     Indication: PREMENSTRUAL SYNDROME
     Dosage: UNK
     Route: 048
     Dates: start: 20060710, end: 20090506
  12. YAZ [Suspect]
     Indication: PREMENSTRUAL SYNDROME
     Dosage: UNK
     Route: 048
     Dates: start: 20081021, end: 20081121
  13. XANAX [Concomitant]
  14. NSAID'S [Concomitant]
     Dosage: UNK
     Dates: start: 19980101, end: 20070101

REACTIONS (8)
  - CHOLELITHIASIS [None]
  - PROCEDURAL PAIN [None]
  - ABDOMINAL PAIN [None]
  - FOOD INTOLERANCE [None]
  - PROCEDURAL VOMITING [None]
  - GALLBLADDER DISORDER [None]
  - GALLBLADDER INJURY [None]
  - VOMITING [None]
